FAERS Safety Report 6877312-5 (Version None)
Quarter: 2010Q3

REPORT INFORMATION
  Report Type: 
  Country: None (occurrence: None)
  Receive Date: 20100727
  Receipt Date: 20090826
  Transmission Date: 20110219
  Serious: No
  Sender: FDA-Public Use
  Company Number: US-ABBOTT-09P-163-0594637-00

PATIENT
  Sex: Female
  Weight: 69.008 kg

DRUGS (9)
  1. SYNTHROID [Suspect]
     Indication: HYPOTHYROIDISM
     Dates: start: 19890101, end: 20090701
  2. SYNTHROID [Suspect]
     Dates: start: 20090701
  3. COGENTIN [Concomitant]
     Indication: DEPRESSION
  4. DEPAKOTE [Concomitant]
     Indication: DEPRESSION
  5. GEODON [Concomitant]
     Indication: DEPRESSION
  6. CYMBALTA [Concomitant]
     Indication: DEPRESSION
  7. FEMORA [Concomitant]
     Indication: DEPRESSION
  8. ATIVAN [Concomitant]
     Indication: DEPRESSION
  9. ZOLPIDEM [Concomitant]
     Indication: SLEEP DISORDER THERAPY

REACTIONS (2)
  - BLOOD THYROID STIMULATING HORMONE DECREASED [None]
  - NIGHTMARE [None]
